FAERS Safety Report 9752963 (Version 1)
Quarter: 2013Q4

REPORT INFORMATION
  Report Type: Spontaneous
  Country: US (occurrence: None)
  Receive Date: 20131211
  Receipt Date: 20131211
  Transmission Date: 20140711
  Serious: Yes (Other)
  Sender: FDA-Public Use
  Company Number: PD-192

PATIENT
  Age: 63 Year
  Sex: Male

DRUGS (1)
  1. CETIRIZINE [Suspect]
     Indication: URTICARIA PIGMENTOSA
     Route: 048

REACTIONS (5)
  - Blood urea increased [None]
  - Blood creatinine increased [None]
  - Lethargy [None]
  - Thirst [None]
  - Nocturia [None]
